FAERS Safety Report 21177253 (Version 1)
Quarter: 2022Q3

REPORT INFORMATION
  Report Type: Spontaneous
  Country: US (occurrence: None)
  Receive Date: 20220804
  Receipt Date: 20220804
  Transmission Date: 20221027
  Serious: No
  Sender: FDA-Public Use
  Company Number: None

PATIENT
  Age: 47 Year
  Sex: Female

DRUGS (1)
  1. COSENTYX [Suspect]
     Active Substance: SECUKINUMAB
     Indication: Osteoarthritis
     Dosage: 300MG ONCE MONTHLY SQ
     Route: 058
     Dates: start: 20220529

REACTIONS (5)
  - Oral herpes [None]
  - Hyperhidrosis [None]
  - Nasopharyngitis [None]
  - Throat irritation [None]
  - Nasal discomfort [None]

NARRATIVE: CASE EVENT DATE: 20220720
